FAERS Safety Report 25480040 (Version 1)
Quarter: 2025Q2

REPORT INFORMATION
  Report Type: Report from Study
  Country: US (occurrence: US)
  Receive Date: 20250625
  Receipt Date: 20250625
  Transmission Date: 20250716
  Serious: Yes (Other)
  Sender: UCB
  Company Number: US-UCBSA-2025036207

PATIENT
  Age: 77 Year
  Sex: Female

DRUGS (2)
  1. BRIVARACETAM [Suspect]
     Active Substance: BRIVARACETAM
     Indication: Epilepsy
     Dosage: 50 MILLIGRAM, 2X/DAY (BID)
     Dates: start: 202503
  2. VIMPAT [Suspect]
     Active Substance: LACOSAMIDE
     Indication: Epilepsy
     Dates: start: 202503

REACTIONS (2)
  - Cataract [Not Recovered/Not Resolved]
  - Cataract operation [Not Recovered/Not Resolved]

NARRATIVE: CASE EVENT DATE: 20250301
